FAERS Safety Report 5249652-7 (Version None)
Quarter: 2007Q1

REPORT INFORMATION
  Report Type: 
  Country: None (occurrence: None)
  Receive Date: 20070228
  Receipt Date: 20060622
  Transmission Date: 20070707
  Serious: Yes (Life-Threatening)
  Sender: FDA-Public Use
  Company Number: US-GLAXOSMITHKLINE-A0608845A

PATIENT
  Age: 34 Year
  Sex: Female
  Weight: 77.3 kg

DRUGS (6)
  1. IMITREX [Suspect]
     Indication: MIGRAINE
     Dosage: 6MG AS REQUIRED
     Route: 058
  2. BIAXIN [Suspect]
     Indication: INFECTION
     Route: 065
  3. ALTACE [Concomitant]
  4. VERAPAMIL [Concomitant]
  5. CYMBALTA [Concomitant]
  6. HYDROCHLOROTHIAZIDE [Concomitant]

REACTIONS (3)
  - ARTERIOSPASM CORONARY [None]
  - BLOOD PRESSURE INCREASED [None]
  - HYPOAESTHESIA [None]
